FAERS Safety Report 20657706 (Version 1)
Quarter: 2022Q1

REPORT INFORMATION
  Report Type: Spontaneous
  Country: AU (occurrence: AU)
  Receive Date: 20220331
  Receipt Date: 20220331
  Transmission Date: 20220423
  Serious: Yes (Hospitalization)
  Sender: FDA-Public Use
  Company Number: AU-MYLANLABS-2022M1023249

PATIENT
  Age: 33 Year
  Sex: Male

DRUGS (3)
  1. CLOZARIL [Suspect]
     Active Substance: CLOZAPINE
     Indication: Schizophrenia
     Dosage: 12.5 MILLIGRAM AT 1030
     Route: 048
     Dates: start: 20220222
  2. CLOZARIL [Suspect]
     Active Substance: CLOZAPINE
     Dosage: 150 MILLIGRAM, HS
     Dates: start: 20220308
  3. Covid-19 vaccine [Concomitant]
     Dosage: BOOSTER DOSE
     Dates: start: 20220225

REACTIONS (6)
  - Dehydration [Unknown]
  - Sinus tachycardia [Unknown]
  - Hypoxia [Unknown]
  - Myocarditis [Unknown]
  - Diarrhoea [Unknown]
  - Hypotension [Unknown]

NARRATIVE: CASE EVENT DATE: 20220307
